FAERS Safety Report 15989269 (Version 1)
Quarter: 2019Q1

REPORT INFORMATION
  Report Type: Spontaneous
  Country: US (occurrence: US)
  Receive Date: 20190221
  Receipt Date: 20190221
  Transmission Date: 20190418
  Serious: Yes (Hospitalization, Other)
  Sender: FDA-Public Use
  Company Number: US-GLAXOSMITHKLINE-US2019028214

PATIENT
  Age: 9 Year
  Sex: Female

DRUGS (1)
  1. LAMICTAL [Suspect]
     Active Substance: LAMOTRIGINE
     Indication: PRODUCT USED FOR UNKNOWN INDICATION
     Dosage: UNK
     Dates: start: 200801

REACTIONS (10)
  - Retinal detachment [Unknown]
  - Skin burning sensation [Unknown]
  - Blindness [Unknown]
  - Suicidal ideation [Unknown]
  - Aphasia [Unknown]
  - Skin exfoliation [Unknown]
  - Mood swings [Unknown]
  - Skin malformation [Unknown]
  - Eye operation [Unknown]
  - Hormone level abnormal [Unknown]

NARRATIVE: CASE EVENT DATE: 200901
